FAERS Safety Report 8225718-4 (Version None)
Quarter: 2012Q1

REPORT INFORMATION
  Report Type: 
  Country: None (occurrence: None)
  Receive Date: 20120321
  Receipt Date: 20120312
  Transmission Date: 20120608
  Serious: Yes (Other)
  Sender: FDA-Public Use
  Company Number: JP-JNJFOC-20110207954

PATIENT
  Age: 28 Year
  Sex: Male

DRUGS (18)
  1. RISPERDAL [Suspect]
     Route: 048
  2. CHLORPROMAZINE HCL [Suspect]
     Indication: PRODUCT USED FOR UNKNOWN INDICATION
     Route: 065
  3. CLONAZEPAM [Concomitant]
     Route: 048
  4. RISPERDAL [Suspect]
     Indication: SCHIZOPHRENIA
     Route: 048
     Dates: end: 20110215
  5. RISPERDAL [Suspect]
     Route: 048
  6. INVEGA [Suspect]
     Route: 048
  7. RISPERDAL [Suspect]
     Route: 048
  8. INVEGA [Suspect]
     Route: 048
     Dates: start: 20110219
  9. RISPERDAL [Suspect]
     Route: 048
     Dates: start: 20110221
  10. CHLORPROMAZINE HCL [Suspect]
     Route: 065
  11. ARTANE [Concomitant]
     Route: 048
  12. INVEGA [Suspect]
     Indication: SCHIZOPHRENIA
     Route: 048
  13. INVEGA [Suspect]
     Route: 048
  14. INVEGA [Suspect]
     Route: 048
     Dates: start: 20110216
  15. RISPERDAL [Suspect]
     Route: 048
  16. RISPERDAL [Suspect]
     Route: 048
  17. DOGMATYL [Concomitant]
     Route: 048
  18. TEGRETOL [Concomitant]
     Route: 048

REACTIONS (22)
  - DYSTONIA [None]
  - AGGRESSION [None]
  - INSOMNIA [None]
  - WITHDRAWAL SYNDROME [None]
  - BLEPHAROSPASM [None]
  - PANIC ATTACK [None]
  - ANGER [None]
  - DELUSION [None]
  - IRRITABILITY [None]
  - CLUTTERING [None]
  - PHOBIA [None]
  - HYPOAESTHESIA [None]
  - WEIGHT INCREASED [None]
  - MYALGIA [None]
  - FATIGUE [None]
  - TARDIVE DYSKINESIA [None]
  - CONVULSION [None]
  - OCULAR HYPERAEMIA [None]
  - NERVOUS SYSTEM DISORDER [None]
  - EXTRAPYRAMIDAL DISORDER [None]
  - HALLUCINATION, AUDITORY [None]
  - DRUG EFFECT DECREASED [None]
